FAERS Safety Report 8013628-7 (Version None)
Quarter: 2011Q4

REPORT INFORMATION
  Report Type: 
  Country: None (occurrence: None)
  Receive Date: 20111229
  Receipt Date: 20111219
  Transmission Date: 20120403
  Serious: Yes (Other)
  Sender: FDA-Public Use
  Company Number: JP-PFIZER INC-2011301310

PATIENT
  Age: 83 Year
  Sex: Male
  Weight: 53 kg

DRUGS (3)
  1. CROMOGLICATE SODIUM [Concomitant]
     Dosage: APPROPRIATE DOSE
     Route: 047
     Dates: start: 20110915
  2. FLUOROMETHOLONE [Concomitant]
     Dosage: APPROPRIATE DOSE
     Route: 047
     Dates: start: 20110915
  3. NEO-MEDROL [Suspect]
     Indication: INFLAMMATION
     Dosage: APPROPRIATE DOSE
     Route: 062
     Dates: start: 20110915, end: 20111209

REACTIONS (1)
  - DEAFNESS [None]
